FAERS Safety Report 8451153 (Version 3)
Quarter: 2012Q4

REPORT INFORMATION
  Report Type: 
  Country: TH (occurrence: TH)
  Receive Date: 20120309
  Receipt Date: 20121025
  Transmission Date: 20130627
  Serious: Yes (Death, Other)
  Sender: FDA-Public Use
  Company Number: PHHY2012TH018723

PATIENT
  Age: 86 Year
  Sex: Male

DRUGS (1)
  1. GLIVEC [Suspect]
     Indication: CHRONIC MYELOID LEUKAEMIA
     Dosage: 400 mg, UNK
     Route: 048
     Dates: start: 20071108

REACTIONS (5)
  - Death [Fatal]
  - Skin cancer [Unknown]
  - Second primary malignancy [Unknown]
  - Metastasis [Unknown]
  - Metastases to lymph nodes [Unknown]
